APPROVED DRUG PRODUCT: RIFAMPIN
Active Ingredient: RIFAMPIN
Strength: 300MG
Dosage Form/Route: CAPSULE;ORAL
Application: A065028 | Product #002
Applicant: HIKMA PHARMACEUTICALS USA INC
Approved: Mar 14, 2001 | RLD: No | RS: No | Type: DISCN